FAERS Safety Report 11861028 (Version 3)
Quarter: 2016Q1

REPORT INFORMATION
  Report Type: Spontaneous
  Country: US (occurrence: US)
  Receive Date: 20151222
  Receipt Date: 20160203
  Transmission Date: 20160526
  Serious: Yes (Other)
  Sender: FDA-Public Use
  Company Number: US-PFIZER INC-2015450557

PATIENT
  Age: 50 Year
  Sex: Male

DRUGS (3)
  1. CYMBALTA [Suspect]
     Active Substance: DULOXETINE HYDROCHLORIDE
     Dosage: 60 MG, DAILY
  2. CYMBALTA [Suspect]
     Active Substance: DULOXETINE HYDROCHLORIDE
     Dosage: 30 MG, DAILY
  3. LYRICA [Suspect]
     Active Substance: PREGABALIN
     Indication: INTERVERTEBRAL DISC PROTRUSION
     Dosage: 50 MG, UNK (3 AT NIGHT)

REACTIONS (18)
  - Weight increased [Unknown]
  - Feeling abnormal [Unknown]
  - Musculoskeletal stiffness [Unknown]
  - Hyperphagia [Unknown]
  - Insomnia [Unknown]
  - Vision blurred [Unknown]
  - Sleep disorder [Unknown]
  - Dysgraphia [Unknown]
  - Amnesia [Unknown]
  - Drug tolerance [Unknown]
  - Pain [Unknown]
  - Hypersomnia [Unknown]
  - Compulsive shopping [Unknown]
  - Motion sickness [Unknown]
  - Feeling drunk [Unknown]
  - Headache [Unknown]
  - Eating disorder [Unknown]
  - Hypertension [Unknown]
